FAERS Safety Report 6282906-4 (Version None)
Quarter: 2009Q3

REPORT INFORMATION
  Report Type: 
  Country: None (occurrence: None)
  Receive Date: 20090724
  Receipt Date: 20090716
  Transmission Date: 20100115
  Serious: Yes (Hospitalization, Other)
  Sender: FDA-Public Use
  Company Number: US-MERCK-0907USA02828

PATIENT
  Age: 69 Year
  Sex: Male

DRUGS (20)
  1. DECADRON [Suspect]
     Indication: MULTIPLE MYELOMA
     Route: 048
  2. REVLIMID [Suspect]
     Indication: MULTIPLE MYELOMA
     Route: 048
     Dates: start: 20090410, end: 20090421
  3. REVLIMID [Suspect]
     Route: 048
     Dates: start: 20090423
  4. ASPIRIN [Concomitant]
     Route: 048
  5. COMBIVENT [Concomitant]
     Route: 065
  6. LASIX [Concomitant]
     Route: 048
  7. CRESTOR [Concomitant]
     Route: 048
  8. METFORMIN [Concomitant]
     Route: 048
  9. MECLIZINE [Concomitant]
     Indication: DIZZINESS
     Route: 048
  10. TRICOR [Concomitant]
     Route: 048
  11. FEXOFENADINE HYDROCHLORIDE [Concomitant]
     Route: 048
  12. ZETIA [Concomitant]
     Route: 048
  13. CARVEDILOL [Concomitant]
     Route: 048
  14. GLIPIZIDE [Concomitant]
     Route: 048
  15. DIOVAN [Concomitant]
     Route: 048
  16. AMIODARONA [Concomitant]
     Route: 048
  17. TERAZOSIN HYDROCHLORIDE [Concomitant]
     Route: 048
  18. PREVACID [Concomitant]
     Route: 048
  19. CENTRUM [Concomitant]
     Route: 048
  20. VITAMIN D (UNSPECIFIED) [Concomitant]
     Route: 065

REACTIONS (5)
  - DYSPNOEA [None]
  - HYPERGLYCAEMIA [None]
  - OROPHARYNGEAL PAIN [None]
  - PNEUMONIA [None]
  - RESTLESS LEGS SYNDROME [None]
